FAERS Safety Report 19997465 (Version 1)
Quarter: 2021Q4

REPORT INFORMATION
  Report Type: Report from Study
  Country: GB (occurrence: GB)
  Receive Date: 20211026
  Receipt Date: 20211026
  Transmission Date: 20220303
  Serious: Yes (Hospitalization)
  Sender: FDA-Public Use
  Company Number: GB-ABBVIE-21K-167-4079803-00

PATIENT
  Age: 70 Year
  Sex: Female

DRUGS (4)
  1. RIVASTIGMINE [Suspect]
     Active Substance: RIVASTIGMINE
     Indication: Product used for unknown indication
     Dosage: UNK
     Route: 062
  2. CARBIDOPA\LEVODOPA [Suspect]
     Active Substance: CARBIDOPA\LEVODOPA
     Indication: Parkinson^s disease
     Dosage: MD-11.1MLS, CR- 3.1MLS, ED- 1.0MLS
     Route: 050
     Dates: start: 20210719, end: 2021
  3. QUETIAPINE [Concomitant]
     Active Substance: QUETIAPINE
     Indication: Product used for unknown indication
     Dosage: 5 MILLIGRAM
  4. RIVASTIGMINE [Concomitant]
     Active Substance: RIVASTIGMINE
     Indication: Product used for unknown indication
     Dosage: PATCH

REACTIONS (23)
  - Disorientation [Unknown]
  - Unevaluable event [Unknown]
  - Feeding disorder [Unknown]
  - Sleep disorder [Unknown]
  - Incoherent [Unknown]
  - Device dislocation [Unknown]
  - Social avoidant behaviour [Unknown]
  - Malaise [Unknown]
  - Bradykinesia [Unknown]
  - On and off phenomenon [Unknown]
  - Immobile [Unknown]
  - Pain [Unknown]
  - Hospitalisation [Unknown]
  - Patient elopement [Unknown]
  - Confusional state [Recovered/Resolved]
  - Mobility decreased [Recovered/Resolved]
  - Facial paralysis [Recovered/Resolved]
  - Somnolence [Unknown]
  - Hallucination [Not Recovered/Not Resolved]
  - Aggression [Unknown]
  - Urinary tract infection [Unknown]
  - Parkinson^s disease [Unknown]
  - Fall [Recovered/Resolved]

NARRATIVE: CASE EVENT DATE: 20210901
